FAERS Safety Report 23687948 (Version 1)
Quarter: 2024Q1

REPORT INFORMATION
  Report Type: Spontaneous
  Country: US (occurrence: None)
  Receive Date: 20240329
  Receipt Date: 20240329
  Transmission Date: 20240409
  Serious: No
  Sender: FDA-Public Use
  Company Number: None

PATIENT
  Sex: Male

DRUGS (1)
  1. HUMIRA [Suspect]
     Active Substance: ADALIMUMAB
     Indication: Drug therapy
     Dosage: OTHER QUANTITY : 1 PEN ;?OTHER FREQUENCY : EVERY 14 DAYS;?
     Route: 058
     Dates: start: 20191101

REACTIONS (7)
  - Therapeutic product effect incomplete [None]
  - Infection [None]
  - Diarrhoea [None]
  - Fatigue [None]
  - Arthralgia [None]
  - Surgery [None]
  - Intentional dose omission [None]
